FAERS Safety Report 6364024-X (Version None)
Quarter: 2009Q3

REPORT INFORMATION
  Report Type: 
  Country: None (occurrence: None)
  Receive Date: 20090919
  Receipt Date: 20090714
  Transmission Date: 20100115
  Serious: No
  Sender: FDA-Public Use
  Company Number: US-ABBOTT-09P-163-0585625-00

PATIENT
  Sex: Male

DRUGS (12)
  1. HUMIRA [Suspect]
     Indication: RHEUMATOID ARTHRITIS
     Route: 058
     Dates: start: 20090616, end: 20090630
  2. SPIRIVA [Concomitant]
     Indication: EMPHYSEMA
     Route: 055
  3. UNKNOWN  INHALER [Concomitant]
     Indication: EMPHYSEMA
     Route: 055
  4. ALBUTEROL [Concomitant]
     Indication: EMPHYSEMA
     Route: 055
  5. LEFLUNOMIDE [Concomitant]
     Indication: RHEUMATOID ARTHRITIS
  6. ALLEGRA [Concomitant]
     Indication: HYPERSENSITIVITY
     Route: 048
  7. ALLOPURINOL [Concomitant]
     Indication: GOUT
     Route: 048
  8. ARTHROTEC [Concomitant]
     Indication: RHEUMATOID ARTHRITIS
     Route: 048
  9. TENORMIN [Concomitant]
     Indication: HYPERTENSION
     Route: 048
  10. CYCLOBENZIPRIL [Concomitant]
     Indication: MUSCLE RELAXANT THERAPY
     Route: 048
  11. XANAX [Concomitant]
     Indication: DRUG USE FOR UNKNOWN INDICATION
     Route: 048
  12. MULTIPLE VITAMINS [Concomitant]
     Indication: MEDICAL DIET
     Route: 048

REACTIONS (5)
  - BURNING SENSATION [None]
  - HEADACHE [None]
  - PRURITUS [None]
  - RASH [None]
  - RASH MACULAR [None]
